FAERS Safety Report 8336062-9 (Version None)
Quarter: 2012Q2

REPORT INFORMATION
  Report Type: 
  Country: None (occurrence: None)
  Receive Date: 20120501
  Receipt Date: 20120501
  Transmission Date: 20120825
  Serious: Yes (Hospitalization)
  Sender: FDA-Public Use
  Company Number: None

PATIENT
  Age: 64 Year
  Sex: Male
  Weight: 101.9 kg

DRUGS (20)
  1. METFORMIN [Concomitant]
  2. VIT C [Concomitant]
  3. AMLODIPINE [Concomitant]
  4. CELEBREX [Suspect]
     Indication: KNEE OPERATION
     Dosage: 200MG DAILY PO RECENT
     Route: 048
  5. HYDROCHLOROTHIAZIDE [Concomitant]
  6. NIACIN [Concomitant]
  7. WARFARIN SODIUM [Suspect]
     Indication: KNEE OPERATION
     Dosage: 2.5MG Q 6 PRN PO RECENT
     Route: 048
  8. TESTOSTERONE [Concomitant]
  9. M.V.I. [Concomitant]
  10. COENZYME [Concomitant]
  11. BYETTA [Concomitant]
  12. ASPIRIN [Suspect]
     Dosage: 81MG X2 DAILY PO CHRONIC
     Route: 048
  13. BENAZEPRIL HYDROCHLORIDE [Concomitant]
  14. FIBERCAP [Concomitant]
  15. VITAMIN D [Concomitant]
  16. METOPROLOL SUCCINATE [Concomitant]
  17. CRESTOR [Concomitant]
  18. PERCOCET [Concomitant]
  19. OXYCONTIN [Concomitant]
  20. FENOFIBRATE [Concomitant]

REACTIONS (4)
  - GASTRIC ULCER [None]
  - UPPER GASTROINTESTINAL HAEMORRHAGE [None]
  - INTERNATIONAL NORMALISED RATIO INCREASED [None]
  - HAEMORRHAGIC ANAEMIA [None]
